FAERS Safety Report 9882075 (Version 1)
Quarter: 2014Q1

REPORT INFORMATION
  Report Type: Spontaneous
  Country: US (occurrence: None)
  Receive Date: 20140205
  Receipt Date: 20140205
  Transmission Date: 20141002
  Serious: Yes (Death)
  Sender: FDA-Public Use
  Company Number: IMP_07445_2014

PATIENT
  Age: 55 Year
  Sex: Male

DRUGS (7)
  1. ALPRAZOLAM [Suspect]
     Indication: PRODUCT USED FOR UNKNOWN INDICATION
     Dosage: (~100 DF ORAL)
  2. VILAZODONE [Suspect]
     Indication: PRODUCT USED FOR UNKNOWN INDICATION
     Dosage: (~21 DF ORAL)
  3. SALIZYLATES NOS [Suspect]
     Indication: PRODUCT USED FOR UNKNOWN INDICATION
     Dosage: (DF ORAL)
  4. ESCITALOPRAM [Suspect]
     Indication: PRODUCT USED FOR UNKNOWN INDICATION
     Dosage: (DF ORAL)
  5. DULOXETINE [Suspect]
     Indication: PRODUCT USED FOR UNKNOWN INDICATION
  6. ARIPIRAZOLE [Concomitant]
  7. CLONAZEPAM [Concomitant]

REACTIONS (20)
  - Exposure via ingestion [None]
  - Exposure via inhalation [None]
  - Completed suicide [None]
  - Unresponsive to stimuli [None]
  - Atrial flutter [None]
  - Hyperthermia [None]
  - Arrhythmia [None]
  - Hypotension [None]
  - Bradycardia [None]
  - Cardio-respiratory arrest [None]
  - Haematemesis [None]
  - Pulmonary oedema [None]
  - Intentional overdose [None]
  - Nystagmus [None]
  - Livedo reticularis [None]
  - Tremor [None]
  - Muscle rigidity [None]
  - Hyperhidrosis [None]
  - Ventricular tachycardia [None]
  - Lung infiltration [None]
